FAERS Safety Report 21747348 (Version 6)
Quarter: 2023Q1

REPORT INFORMATION
  Report Type: Report from Study
  Country: US (occurrence: US)
  Receive Date: 20221219
  Receipt Date: 20230227
  Transmission Date: 20230418
  Serious: Yes (Other)
  Sender: FDA-Public Use
  Company Number: US-002147023-NVSC2022US292425

PATIENT
  Sex: Male

DRUGS (2)
  1. ENTRESTO [Suspect]
     Active Substance: SACUBITRIL\VALSARTAN
     Indication: Product used for unknown indication
     Dosage: UNK (TOOK MEDICATION FOR 2 WEEKS)
     Route: 065
     Dates: start: 202211, end: 202211
  2. LOSARTAN [Suspect]
     Active Substance: LOSARTAN
     Indication: Product used for unknown indication
     Dosage: UNK
     Route: 065

REACTIONS (10)
  - Neuropathy peripheral [Unknown]
  - Hypokinesia [Unknown]
  - Adverse drug reaction [Unknown]
  - Balance disorder [Unknown]
  - Concomitant disease aggravated [Unknown]
  - Urinary tract infection [Recovering/Resolving]
  - Headache [Unknown]
  - Fall [Recovering/Resolving]
  - Dizziness [Unknown]
  - Hypotension [Not Recovered/Not Resolved]
